FAERS Safety Report 17573538 (Version 2)
Quarter: 2020Q2

REPORT INFORMATION
  Report Type: Report from Study
  Country: TW (occurrence: TW)
  Receive Date: 20200323
  Receipt Date: 20200409
  Transmission Date: 20200713
  Serious: Yes (Hospitalization, Other)
  Sender: FDA-Public Use
  Company Number: TW-JNJFOC-20200322438

PATIENT
  Age: 72 Year
  Sex: Male
  Weight: 56 kg

DRUGS (3)
  1. STELARA [Suspect]
     Active Substance: USTEKINUMAB
     Indication: PSORIASIS
     Route: 058
     Dates: start: 20200208, end: 20200307
  2. SALAZINE [Concomitant]
     Active Substance: SULFASALAZINE
     Route: 048
     Dates: start: 20200111
  3. ARHEUMA [Concomitant]
     Route: 048
     Dates: start: 20200111

REACTIONS (4)
  - Colitis ulcerative [Recovered/Resolved]
  - Gastrointestinal infection [Recovered/Resolved]
  - Sepsis [Recovered/Resolved]
  - Psoriatic arthropathy [Recovered/Resolved]

NARRATIVE: CASE EVENT DATE: 2020
